FAERS Safety Report 8402757-1 (Version None)
Quarter: 2012Q2

REPORT INFORMATION
  Report Type: 
  Country: None (occurrence: None)
  Receive Date: 20120601
  Receipt Date: 20120529
  Transmission Date: 20120825
  Serious: Yes (Death, Hospitalization)
  Sender: FDA-Public Use
  Company Number: US-BAYER-2012-053524

PATIENT
  Age: 24 Year
  Sex: Female

DRUGS (9)
  1. YASMIN [Suspect]
     Indication: FOLLICULITIS
  2. CLINDAMYCIN [Concomitant]
     Dosage: 150 MG, UNK
  3. IBUPROFEN [Concomitant]
     Dosage: 600 MG, UNK
  4. YASMIN [Suspect]
     Indication: POLYCYSTIC OVARIES
  5. HYDROCODONE BITARTRATE + ACETAMINOPHEN [Concomitant]
  6. YASMIN [Suspect]
     Indication: HIRSUTISM
  7. YASMIN [Suspect]
     Indication: MENSTRUATION IRREGULAR
  8. MOTRIN [Concomitant]
     Indication: ABDOMINAL PAIN
  9. ACETAMINOPHEN-COD#2 [Concomitant]

REACTIONS (1)
  - PULMONARY EMBOLISM [None]
